FAERS Safety Report 12156249 (Version 1)
Quarter: 2016Q1

REPORT INFORMATION
  Report Type: Spontaneous
  Country: ZA (occurrence: ZA)
  Receive Date: 20160307
  Receipt Date: 20160307
  Transmission Date: 20160526
  Serious: Yes (Other)
  Sender: FDA-Public Use
  Company Number: ZA-MYLANLABS-2016M1009433

PATIENT

DRUGS (1)
  1. TENOFOVIR DF/EFAVIRENZ/EMTRICITABINE TABLETS 300/600/200MG [Suspect]
     Active Substance: EFAVIRENZ\EMTRICITABINE\TENOFOVIR DISOPROXIL FUMARATE
     Indication: ANTIRETROVIRAL THERAPY
     Dosage: UNK (DAILY)
     Route: 048
     Dates: start: 20141230

REACTIONS (4)
  - CD4 lymphocytes decreased [Unknown]
  - Rash [Unknown]
  - Blood creatinine increased [Unknown]
  - Alanine aminotransferase abnormal [Unknown]

NARRATIVE: CASE EVENT DATE: 20150223
